FAERS Safety Report 6581708-9 (Version None)
Quarter: 2010Q1

REPORT INFORMATION
  Report Type: 
  Country: None (occurrence: None)
  Receive Date: 20100211
  Receipt Date: 20100211
  Transmission Date: 20100710
  Serious: No
  Sender: FDA-Public Use
  Company Number: None

PATIENT
  Age: 52 Year
  Sex: Female
  Weight: 71.6683 kg

DRUGS (2)
  1. PRED FORTE [Suspect]
     Indication: IRITIS
     Dosage: 1 DROP 3XD X 1 WK, 2XD X 1 WK, 1 XD X 1 WK, THEN D/C
  2. PRED FORTE [Suspect]
     Indication: SCLERITIS
     Dosage: 1 DROP 3XD X 1 WK, 2XD X 1 WK, 1 XD X 1 WK, THEN D/C

REACTIONS (3)
  - DRUG INEFFECTIVE [None]
  - PRODUCT SUBSTITUTION ISSUE [None]
  - THERAPEUTIC RESPONSE UNEXPECTED WITH DRUG SUBSTITUTION [None]
